FAERS Safety Report 13516781 (Version 1)
Quarter: 2017Q2

REPORT INFORMATION
  Report Type: Spontaneous
  Country: US (occurrence: US)
  Receive Date: 20170504
  Receipt Date: 20170504
  Transmission Date: 20170916
  Serious: Yes (Disabling)
  Sender: FDA-Public Use
  Company Number: None

PATIENT
  Age: 53 Year
  Sex: Female
  Weight: 73.8 kg

DRUGS (7)
  1. DULERA [Concomitant]
     Active Substance: FORMOTEROL FUMARATE DIHYDRATE\MOMETASONE FUROATE
  2. OTC MOTRIN [Concomitant]
  3. LEVOFLOXACIN 500 MG (7 TABLETS) [Suspect]
     Active Substance: LEVOFLOXACIN
     Indication: ATYPICAL PNEUMONIA
     Dosage: ?          QUANTITY:1 TABLET(S);?
     Route: 048
     Dates: start: 20170126, end: 20170201
  4. ALBUTEROL. [Concomitant]
     Active Substance: ALBUTEROL
  5. PREDNISONE. [Concomitant]
     Active Substance: PREDNISONE
  6. Z-PACK [Concomitant]
     Active Substance: AZITHROMYCIN DIHYDRATE
  7. LEVAQUIN [Concomitant]
     Active Substance: LEVOFLOXACIN

REACTIONS (5)
  - Loss of personal independence in daily activities [None]
  - Musculoskeletal stiffness [None]
  - Myalgia [None]
  - Gait disturbance [None]
  - Arthralgia [None]

NARRATIVE: CASE EVENT DATE: 20170201
